FAERS Safety Report 8257190-2 (Version None)
Quarter: 2012Q2

REPORT INFORMATION
  Report Type: 
  Country: None (occurrence: None)
  Receive Date: 20120403
  Receipt Date: 20120330
  Transmission Date: 20120825
  Serious: No
  Sender: FDA-Public Use
  Company Number: US-PFIZER INC-2012081882

PATIENT
  Age: 54 Year
  Sex: Female
  Weight: 68 kg

DRUGS (5)
  1. PREMARIN [Suspect]
     Indication: HOT FLUSH
     Dosage: 0.625 MG, DAILY
     Route: 048
     Dates: start: 20120309, end: 20120330
  2. CALCIUM [Concomitant]
     Dosage: UNK, 2X/DAY
  3. MULTI-VITAMINS [Concomitant]
     Dosage: UNKN, DAILY
  4. PREMARIN [Suspect]
     Indication: MENOPAUSAL SYMPTOMS
     Dosage: 0.625 MG, DAILY
     Route: 048
  5. LEVOTHYROXINE [Concomitant]
     Indication: HYPOTHYROIDISM
     Dosage: 75 UG, DAILY

REACTIONS (2)
  - URTICARIA [None]
  - PRURITUS [None]
